FAERS Safety Report 20257699 (Version 1)
Quarter: 2021Q4

REPORT INFORMATION
  Report Type: Spontaneous
  Country: CO (occurrence: CO)
  Receive Date: 20211230
  Receipt Date: 20211230
  Transmission Date: 20220303
  Serious: Yes (Other)
  Sender: FDA-Public Use
  Company Number: CO-PFIZER INC-202101835803

PATIENT
  Age: 85 Year
  Sex: Female

DRUGS (1)
  1. XELJANZ XR [Suspect]
     Active Substance: TOFACITINIB CITRATE
     Indication: Rheumatoid arthritis
     Dosage: 11 MG, DAILY
     Route: 048
     Dates: start: 202106

REACTIONS (6)
  - Varicose ulceration [Not Recovered/Not Resolved]
  - Gait disturbance [Not Recovered/Not Resolved]
  - Vein disorder [Not Recovered/Not Resolved]
  - Product dispensing issue [Not Recovered/Not Resolved]
  - Pain [Not Recovered/Not Resolved]
  - Cellulite [Not Recovered/Not Resolved]

NARRATIVE: CASE EVENT DATE: 20210901
